FAERS Safety Report 24648320 (Version 1)
Quarter: 2024Q4

REPORT INFORMATION
  Report Type: Spontaneous
  Country: CZ (occurrence: CZ)
  Receive Date: 20241121
  Receipt Date: 20241121
  Transmission Date: 20250115
  Serious: Yes (Life-Threatening, Hospitalization, Other)
  Sender: MERCK
  Company Number: None

PATIENT
  Age: 68 Year
  Sex: Male
  Weight: 65 kg

DRUGS (12)
  1. KEYTRUDA [Suspect]
     Active Substance: PEMBROLIZUMAB
     Indication: Renal cancer
     Dosage: FLAT DOSE 200 MG EVERY 21 DAYS, 6 CYCLES ADMINISTERED
     Route: 042
     Dates: start: 20240612, end: 20240925
  2. SPIRIVA [Concomitant]
     Active Substance: TIOTROPIUM BROMIDE MONOHYDRATE
     Dosage: 1 INHALATION ONCE PER DAY IN THE MORNING 1-0-0
  3. HYDROCHLOROTHIAZIDE\LOSARTAN POTASSIUM [Concomitant]
     Active Substance: HYDROCHLOROTHIAZIDE\LOSARTAN POTASSIUM
     Dosage: ONCE A DAY 1-0-0
     Route: 048
  4. PREDNISONE [Concomitant]
     Active Substance: PREDNISONE
  5. ALLOPURINOL [Concomitant]
     Active Substance: ALLOPURINOL
     Dosage: ONCE A DAY 1-0-0
     Route: 048
  6. SERTRALINE HYDROCHLORIDE [Concomitant]
     Active Substance: SERTRALINE HYDROCHLORIDE
     Dosage: ONCE A DAY 1-0-0
     Route: 048
  7. POTASSIUM CHLORIDE [Concomitant]
     Active Substance: POTASSIUM CHLORIDE
     Dosage: ONCE A DAY FOR THE TIME OF USING PREDNISONE
     Route: 048
  8. ATORVASTATIN CALCIUM [Concomitant]
     Active Substance: ATORVASTATIN CALCIUM
     Dosage: ONCE A DAY 0-0-0-1
     Route: 048
  9. RAMIPRIL [Concomitant]
     Active Substance: RAMIPRIL
     Dosage: ONCE A DAY 1-0-0
     Route: 048
  10. INDACATEROL [Concomitant]
     Active Substance: INDACATEROL
     Dosage: ONCE A DAY ONE INHALATION 1-0-0
  11. HYLAK FORTE [Concomitant]
     Dosage: PRESCRIPTION: 3 TIMES A DAY / ML: 2-2-2
     Route: 048
  12. RAPOXOL [Concomitant]
     Dosage: ?NCE A DAY BEFORE FOOD 1-0-0
     Route: 048

REACTIONS (2)
  - Gastroenteritis [Recovering/Resolving]
  - Diarrhoea [Recovered/Resolved]

NARRATIVE: CASE EVENT DATE: 20240101
